FAERS Safety Report 18726581 (Version 1)
Quarter: 2021Q1

REPORT INFORMATION
  Report Type: Spontaneous
  Country: NL (occurrence: NL)
  Receive Date: 20210112
  Receipt Date: 20210112
  Transmission Date: 20210419
  Serious: Yes (Other)
  Sender: FDA-Public Use
  Company Number: NL-AUROBINDO-AUR-APL-2021-000801

PATIENT
  Age: 71 Year
  Sex: Female

DRUGS (10)
  1. IXAZOMIB [Suspect]
     Active Substance: IXAZOMIB
     Dosage: UNK
  2. ALBUMIN [Suspect]
     Active Substance: ALBUMIN HUMAN
     Indication: HYPERVISCOSITY SYNDROME
     Dosage: UNK
     Route: 065
  3. DEXAMETHASON [Suspect]
     Active Substance: DEXAMETHASONE
     Indication: PLASMA CELL MYELOMA
     Dosage: 40 MILLIGRAM, EVERY WEEK
     Route: 065
  4. ALBUMIN [Suspect]
     Active Substance: ALBUMIN HUMAN
     Indication: PLASMA CELL MYELOMA
     Dosage: UNK (5% ALBUMIN AND 0.9% SALINE WITH A PRESCRIBED VOLUME OF 50 TO 60 ML/KG BODY
     Route: 065
  5. IXAZOMIB [Suspect]
     Active Substance: IXAZOMIB
     Indication: PLASMA CELL MYELOMA
     Dosage: 4 MILLIGRAM (9 MONTHLY CYCLES OF IXAZOMIB (ON DAYS 1, 8, AND 15 OF A 28?DAY CYCLE)
     Route: 048
  6. THALIDOMIDE [Suspect]
     Active Substance: THALIDOMIDE
     Indication: HYPERVISCOSITY SYNDROME
     Dosage: UNK
     Route: 065
  7. SALINE [Suspect]
     Active Substance: SODIUM CHLORIDE
     Indication: HYPERVISCOSITY SYNDROME
     Dosage: UNK
     Route: 065
  8. DEXAMETHASON [Suspect]
     Active Substance: DEXAMETHASONE
     Indication: HYPERVISCOSITY SYNDROME
     Dosage: UNK
     Route: 065
  9. THALIDOMIDE [Suspect]
     Active Substance: THALIDOMIDE
     Dosage: 100 MILLIGRAM (THALIDOMIDE (ON DAYS 1?21 OF A 28?DAY CYCLE)
     Route: 065
  10. SALINE [Suspect]
     Active Substance: SODIUM CHLORIDE
     Indication: PLASMA CELL MYELOMA
     Dosage: UNK (5% ALBUMIN AND 0.9% SALINE WITH A PRESCRIBED VOLUME OF 50 TO 60 ML/KG BODY
     Route: 065

REACTIONS (2)
  - Nausea [Unknown]
  - Polyneuropathy [Unknown]
